FAERS Safety Report 5083157-1 (Version None)
Quarter: 2006Q3

REPORT INFORMATION
  Report Type: 
  Country: None (occurrence: None)
  Receive Date: 20060724
  Receipt Date: 20031121
  Transmission Date: 20061208
  Serious: Yes (Hospitalization)
  Sender: FDA-Public Use
  Company Number: DRON00206001452

PATIENT
  Age: 34 Year
  Sex: Female

DRUGS (7)
  1. MARINOL [Suspect]
     Indication: MULTIPLE SCLEROSIS
     Dosage: ORAL
     Route: 048
     Dates: start: 20020207, end: 20030205
  2. MARINOL [Suspect]
     Indication: MUSCLE SPASTICITY
     Dosage: ORAL
     Route: 048
     Dates: start: 20020207, end: 20030205
  3. BACLOFEN [Concomitant]
  4. DOTHIEPIN (DOTHIEPIN) [Concomitant]
  5. OXYBUTININ (OXYBUTININ) [Concomitant]
  6. RANITIDINE [Concomitant]
  7. TIZANIDINE HCL [Concomitant]

REACTIONS (1)
  - GROIN ABSCESS [None]
